FAERS Safety Report 6675266-8 (Version None)
Quarter: 2010Q2

REPORT INFORMATION
  Report Type: 
  Country: None (occurrence: None)
  Receive Date: 20100409
  Receipt Date: 20091222
  Transmission Date: 20101027
  Serious: No
  Sender: FDA-Public Use
  Company Number: A0836438A

PATIENT
  Sex: Female

DRUGS (5)
  1. TYKERB [Suspect]
     Indication: BREAST CANCER
     Dosage: 1250MG PER DAY
     Route: 048
     Dates: start: 20091121
  2. XELODA [Concomitant]
  3. ONDANSETRON [Concomitant]
  4. COUGH MEDICATION [Concomitant]
  5. TYLENOL-500 [Concomitant]

REACTIONS (4)
  - COUGH [None]
  - HEADACHE [None]
  - NAUSEA [None]
  - VOMITING [None]
